FAERS Safety Report 14686688 (Version 1)
Quarter: 2018Q1

REPORT INFORMATION
  Report Type: Spontaneous
  Country: CA (occurrence: CA)
  Receive Date: 20180327
  Receipt Date: 20180327
  Transmission Date: 20180509
  Serious: Yes (Other)
  Sender: FDA-Public Use
  Company Number: CA-MYLANLABS-2018M1018231

PATIENT
  Sex: Male

DRUGS (1)
  1. ERYTHROMYCIN. [Suspect]
     Active Substance: ERYTHROMYCIN
     Indication: PROPHYLAXIS
     Dosage: UNK
     Route: 047

REACTIONS (2)
  - Skin reaction [Recovering/Resolving]
  - Transient neonatal pustular melanosis [Recovered/Resolved with Sequelae]
